FAERS Safety Report 6204396-X (Version None)
Quarter: 2009Q2

REPORT INFORMATION
  Report Type: 
  Country: None (occurrence: None)
  Receive Date: 20090522
  Receipt Date: 20090511
  Transmission Date: 20091009
  Serious: Yes (Other)
  Sender: FDA-Public Use
  Company Number: 1000005735

PATIENT
  Age: 39 Year
  Sex: Female
  Weight: 70.1 kg

DRUGS (2)
  1. MILNACIPRAN (OPEN-LABEL) (MILNACIPRAN HYDROCHLORIDE) [Suspect]
     Dosage: 100 MG (50 MG, 2 IN 1 D), ORAL
     Route: 048
     Dates: start: 20090324, end: 20090331
  2. PREGABALIN [Suspect]
     Dosage: 600 MG (300 MG, 2 IN1 D), ORAL
     Route: 048
     Dates: start: 20090309, end: 20090331

REACTIONS (4)
  - ABORTION SPONTANEOUS [None]
  - DRUG EXPOSURE DURING PREGNANCY [None]
  - PREGNANCY [None]
  - STRESS [None]
